FAERS Safety Report 22670757 (Version 2)
Quarter: 2024Q3

REPORT INFORMATION
  Report Type: Spontaneous
  Country: US (occurrence: US)
  Receive Date: 20230705
  Receipt Date: 20240702
  Transmission Date: 20241017
  Serious: No
  Sender: SAREPTA THERAPEUTICS
  Company Number: US-SAREPTA THERAPEUTICS INC.-SRP2023-003463

PATIENT
  Age: 11 Year
  Sex: Male
  Weight: 74 kg

DRUGS (3)
  1. EXONDYS 51 [Suspect]
     Active Substance: ETEPLIRSEN
     Indication: Product used for unknown indication
     Dosage: 1100 MILLIGRAM, WEEKLY
     Route: 042
     Dates: start: 20190802, end: 20230607
  2. EXONDYS 51 [Suspect]
     Active Substance: ETEPLIRSEN
     Dosage: 1100 MILLIGRAM, WEEKLY
     Route: 042
     Dates: start: 20230613, end: 20230823
  3. EXONDYS 51 [Suspect]
     Active Substance: ETEPLIRSEN
     Dosage: 1100 MILLIGRAM, WEEKLY
     Route: 042
     Dates: start: 20230906

REACTIONS (2)
  - Intentional dose omission [Unknown]
  - No adverse event [Unknown]

NARRATIVE: CASE EVENT DATE: 20230607
